FAERS Safety Report 12261890 (Version 4)
Quarter: 2016Q2

REPORT INFORMATION
  Report Type: Spontaneous
  Country: US (occurrence: US)
  Receive Date: 20160413
  Receipt Date: 20160610
  Transmission Date: 20160815
  Serious: Yes (Other)
  Sender: FDA-Public Use
  Company Number: US-PFIZER INC-2016153647

PATIENT
  Age: 89 Year
  Sex: Male

DRUGS (8)
  1. SUTENT [Suspect]
     Active Substance: SUNITINIB MALATE
     Indication: NEUROENDOCRINE TUMOUR
     Dosage: 37.5 MG, CYCLIC(DAILY)
     Dates: start: 20160323, end: 20160420
  2. PAROXETINE. [Concomitant]
     Active Substance: PAROXETINE
     Dosage: UNK
  3. ALLOPURINOL. [Concomitant]
     Active Substance: ALLOPURINOL
     Dosage: UNK
  4. SANDOSTATIN [Concomitant]
     Active Substance: OCTREOTIDE ACETATE
     Dosage: UNK
  5. COREG [Concomitant]
     Active Substance: CARVEDILOL
     Dosage: UNK
  6. BABY ASPIRIN [Concomitant]
     Active Substance: ASPIRIN
     Dosage: UNK
  7. AMLODIPINE [Concomitant]
     Active Substance: AMLODIPINE BESYLATE
     Dosage: UNK
  8. LOVAZA [Concomitant]
     Active Substance: OMEGA-3-ACID ETHYL ESTERS
     Dosage: UNK

REACTIONS (26)
  - Glossodynia [Unknown]
  - Ageusia [Unknown]
  - Paraesthesia [Not Recovered/Not Resolved]
  - Paralysis [Unknown]
  - Skin disorder [Recovered/Resolved]
  - Asthenia [Unknown]
  - Sunburn [Unknown]
  - Oral pain [Unknown]
  - Dysuria [Unknown]
  - Malaise [Unknown]
  - Decreased appetite [Unknown]
  - Hypoaesthesia [Unknown]
  - Coordination abnormal [Unknown]
  - Dysarthria [Unknown]
  - Dry mouth [Unknown]
  - Dysgeusia [Unknown]
  - Gastric disorder [Unknown]
  - Diarrhoea [Unknown]
  - Pain in extremity [Unknown]
  - Product use issue [Unknown]
  - Faeces hard [Unknown]
  - Lung disorder [Unknown]
  - Back pain [Unknown]
  - Genital rash [Unknown]
  - Disease progression [Unknown]
  - Neuroendocrine tumour [Unknown]
